FAERS Safety Report 9671370 (Version 2)
Quarter: 2013Q4

REPORT INFORMATION
  Report Type: Spontaneous
  Country: US (occurrence: US)
  Receive Date: 20131106
  Receipt Date: 20131106
  Transmission Date: 20140711
  Serious: No
  Sender: FDA-Public Use
  Company Number: US-ABBVIE-11P-163-0874691-00

PATIENT
  Sex: Male
  Weight: 127.12 kg

DRUGS (1)
  1. TRICOR TABLETS [Suspect]
     Indication: BLOOD CHOLESTEROL INCREASED

REACTIONS (1)
  - Myalgia [Recovered/Resolved]
